FAERS Safety Report 5993467-9 (Version None)
Quarter: 2008Q4

REPORT INFORMATION
  Report Type: 
  Country: None (occurrence: None)
  Receive Date: 20081212
  Receipt Date: 20081209
  Transmission Date: 20090506
  Serious: Yes (Life-Threatening)
  Sender: FDA-Public Use
  Company Number: JP-EISAI MEDICAL RESEARCH-E2020-03740-SPO-JP

PATIENT
  Age: 87 Year
  Sex: Female

DRUGS (4)
  1. ARICEPT [Suspect]
     Indication: DEMENTIA ALZHEIMER'S TYPE
     Route: 048
     Dates: start: 20080606, end: 20080612
  2. ARICEPT [Suspect]
     Route: 048
     Dates: start: 20080613, end: 20081114
  3. FLUITRAN [Suspect]
     Indication: HYPERTENSION
     Route: 048
     Dates: end: 20081114
  4. NORVASC [Concomitant]
     Indication: HYPERTENSION
     Route: 048
     Dates: end: 20081114

REACTIONS (2)
  - CARDIO-RESPIRATORY ARREST [None]
  - TORSADE DE POINTES [None]
